FAERS Safety Report 7499847-7 (Version None)
Quarter: 2011Q2

REPORT INFORMATION
  Report Type: 
  Country: None (occurrence: None)
  Receive Date: 20110524
  Receipt Date: 20110516
  Transmission Date: 20111010
  Serious: Yes (Other)
  Sender: FDA-Public Use
  Company Number: US-ELI_LILLY_AND_COMPANY-BR201105005005

PATIENT
  Age: 75 Year
  Sex: Female

DRUGS (2)
  1. VINORELBINE [Concomitant]
     Dosage: 40 MG, UNK
     Route: 065
  2. GEMZAR [Suspect]
     Indication: LIPOSARCOMA
     Dosage: UNK, OTHER
     Route: 065

REACTIONS (3)
  - OFF LABEL USE [None]
  - NEOPLASM [None]
  - THROMBOSIS [None]
